FAERS Safety Report 19219368 (Version 1)
Quarter: 2021Q2

REPORT INFORMATION
  Report Type: Spontaneous
  Country: US (occurrence: US)
  Receive Date: 20210506
  Receipt Date: 20210506
  Transmission Date: 20210717
  Serious: No
  Sender: FDA-Public Use
  Company Number: US-ROCHE-2631330

PATIENT
  Age: 74 Year
  Sex: Female

DRUGS (2)
  1. ESBRIET [Suspect]
     Active Substance: PIRFENIDONE
     Indication: PULMONARY FIBROSIS
     Route: 048
     Dates: start: 202006, end: 202009
  2. ESBRIET [Suspect]
     Active Substance: PIRFENIDONE
     Indication: PULMONARY FIBROSIS
     Dosage: 2 CAPSULES 3 TIMES A DAILY
     Route: 048
     Dates: start: 20200601

REACTIONS (9)
  - Fatigue [Unknown]
  - Nausea [Unknown]
  - Tremor [Unknown]
  - Off label use [Unknown]
  - Constipation [Unknown]
  - Nervousness [Unknown]
  - Gastric disorder [Unknown]
  - Anxiety [Unknown]
  - Intentional product use issue [Unknown]

NARRATIVE: CASE EVENT DATE: 20200805
